FAERS Safety Report 6679176-1 (Version None)
Quarter: 2010Q2

REPORT INFORMATION
  Report Type: 
  Country: None (occurrence: None)
  Receive Date: 20100409
  Receipt Date: 20100403
  Transmission Date: 20101027
  Serious: Yes (Other)
  Sender: FDA-Public Use
  Company Number: 2010SP019875

PATIENT
  Sex: Male

DRUGS (1)
  1. CLARITIN-D 24 HOUR [Suspect]
     Indication: SEASONAL ALLERGY
     Dosage: 10 MG;QD;PO
     Route: 048
     Dates: start: 20100402, end: 20100403

REACTIONS (3)
  - BACK PAIN [None]
  - DYSURIA [None]
  - RENAL PAIN [None]
